FAERS Safety Report 8765232 (Version 1)
Quarter: 2012Q4

REPORT INFORMATION
  Report Type: 
  Country: US (occurrence: US)
  Receive Date: 20120903
  Receipt Date: 20120903
  Transmission Date: 20130627
  Serious: No
  Sender: FDA-Public Use
  Company Number: US-PFIZER INC-2012212828

PATIENT
  Age: 64 Year
  Sex: Male

DRUGS (5)
  1. XALKORI [Suspect]
     Dosage: 200 mg, 2x/day
     Route: 048
  2. COUMADINE [Concomitant]
     Dosage: 10 mg, UNK
  3. METFORMIN [Concomitant]
     Dosage: 1000 mg, UNK
  4. METOPROLOL [Concomitant]
     Dosage: 100 mg, UNK
  5. HYDROCORT [Concomitant]
     Dosage: 10 mg, UNK

REACTIONS (1)
  - Dizziness [Unknown]
